FAERS Safety Report 14925579 (Version 1)
Quarter: 2018Q2

REPORT INFORMATION
  Report Type: Spontaneous
  Country: BR (occurrence: BR)
  Receive Date: 20180522
  Receipt Date: 20180522
  Transmission Date: 20180711
  Serious: Yes (Hospitalization)
  Sender: FDA-Public Use
  Company Number: BR-FRESENIUS KABI-FK201806064

PATIENT
  Sex: Male

DRUGS (2)
  1. ESMOLOL [Suspect]
     Active Substance: ESMOLOL HYDROCHLORIDE
     Indication: PRODUCT USED FOR UNKNOWN INDICATION
     Route: 042
  2. SALINE SOLUTION [Concomitant]
     Active Substance: SODIUM CHLORIDE
     Indication: DEHYDRATION
     Route: 065

REACTIONS (8)
  - Somnolence [Recovered/Resolved]
  - Rhabdomyolysis [Recovered/Resolved]
  - Thrombocytopenia [Recovered/Resolved]
  - Coagulopathy [Recovered/Resolved]
  - Heat stroke [Recovered/Resolved]
  - Condition aggravated [Recovered/Resolved]
  - Coma [Recovered/Resolved]
  - Acute hepatic failure [Recovered/Resolved]
